FAERS Safety Report 9164706 (Version 1)
Quarter: 2013Q1

REPORT INFORMATION
  Report Type: Spontaneous
  Country: FR (occurrence: None)
  Receive Date: 20130226
  Receipt Date: 20130226
  Transmission Date: 20140127
  Serious: No
  Sender: FDA-Public Use
  Company Number: 2013-02798

PATIENT
  Age: 26 Year
  Sex: Female

DRUGS (1)
  1. ZOLPIDEM TARTRATE (UNKNOWN) (ZOLPIDEM TARTRATE) UNK, UNKUNK [Suspect]
     Indication: PRODUCT USED FOR UNKNOWN INDICATION
     Dosage: 2 TABLES SINGLE
     Route: 013

REACTIONS (5)
  - Ischaemia [None]
  - Necrosis [None]
  - Finger amputation [None]
  - Intentional drug misuse [None]
  - Incorrect route of drug administration [None]
